FAERS Safety Report 7620358-X (Version None)
Quarter: 2011Q3

REPORT INFORMATION
  Report Type: 
  Country: None (occurrence: None)
  Receive Date: 20110718
  Receipt Date: 20110718
  Transmission Date: 20111222
  Serious: Yes (Other)
  Sender: FDA-Public Use
  Company Number: None

PATIENT
  Sex: Female
  Weight: 81.646 kg

DRUGS (1)
  1. BUPRENORPHINE [Suspect]
     Indication: PAIN MANAGEMENT
     Dosage: 1 TABLET
     Route: 060
     Dates: start: 20110629, end: 20110714

REACTIONS (3)
  - JOINT SWELLING [None]
  - MUSCLE TWITCHING [None]
  - OEDEMA PERIPHERAL [None]
